FAERS Safety Report 6423587-6 (Version None)
Quarter: 2009Q4

REPORT INFORMATION
  Report Type: 
  Country: None (occurrence: None)
  Receive Date: 20091030
  Receipt Date: 20091030
  Transmission Date: 20100525
  Serious: Yes (Hospitalization)
  Sender: FDA-Public Use
  Company Number: None

PATIENT
  Sex: Female
  Weight: 49.9 kg

DRUGS (3)
  1. FLUOROURACIL [Suspect]
     Dosage: 6600 MG
  2. CISPLATIN [Suspect]
  3. ERBITUX [Suspect]
     Dosage: 824 MG

REACTIONS (4)
  - DECREASED APPETITE [None]
  - HYPOTENSION [None]
  - NAUSEA [None]
  - TACHYCARDIA [None]
